FAERS Safety Report 21091201 (Version 3)
Quarter: 2022Q4

REPORT INFORMATION
  Report Type: Spontaneous
  Country: US (occurrence: US)
  Receive Date: 20220716
  Receipt Date: 20221206
  Transmission Date: 20230113
  Serious: No
  Sender: FDA-Public Use
  Company Number: US-BRISTOL-MYERS SQUIBB COMPANY-2022-073759

PATIENT
  Age: 74 Year
  Sex: Female

DRUGS (2)
  1. REVLIMID [Suspect]
     Active Substance: LENALIDOMIDE
     Indication: Sarcoidosis
     Dosage: FREQ: TAKE 1 CAPSULE BY MOUTH DAILY ON DAYS 1-28, CONTINUOUS
     Route: 048
  2. REVLIMID [Suspect]
     Active Substance: LENALIDOMIDE
     Dosage: FREQ: TAKE 1 CAPSULE BY MOUTH DAILY ON DAYS 1-28, CONTINUOUS?FREQUENCY CYCLE : TAKE 1 CAPSULE BY MOU
     Route: 048
     Dates: start: 20210825

REACTIONS (5)
  - Platelet count decreased [Unknown]
  - Dizziness [Unknown]
  - Intentional product use issue [Unknown]
  - Product dose omission issue [Unknown]
  - Fatigue [Unknown]
